FAERS Safety Report 4532575-6 (Version None)
Quarter: 2004Q4

REPORT INFORMATION
  Report Type: 
  Country: None (occurrence: None)
  Receive Date: 20041206
  Receipt Date: 20040928
  Transmission Date: 20050328
  Serious: No
  Sender: FDA-Public Use
  Company Number: USA040979612

PATIENT
  Age: 20 Year
  Sex: Male
  Weight: 66 kg

DRUGS (4)
  1. CYMBALTA [Suspect]
     Indication: DEPRESSION
     Dosage: 30 MG DAY
     Dates: start: 20040910
  2. ACCUTANE (ISOTRETINOIN RATIOPHARM) [Concomitant]
  3. LEXAPRO [Concomitant]
  4. ADDERALL 10 [Concomitant]

REACTIONS (1)
  - FLUSHING [None]
